FAERS Safety Report 9599607 (Version 1)
Quarter: 2013Q4

REPORT INFORMATION
  Report Type: Spontaneous
  Country: US (occurrence: US)
  Receive Date: 20131004
  Receipt Date: 20131004
  Transmission Date: 20140711
  Serious: No
  Sender: FDA-Public Use
  Company Number: US-AMGEN-USASP2013030549

PATIENT
  Age: 44 Year
  Sex: Female

DRUGS (6)
  1. ENBREL [Suspect]
     Indication: PRODUCT USED FOR UNKNOWN INDICATION
     Dosage: 50 MG, QWK
     Route: 058
  2. CELEXA                             /00582602/ [Concomitant]
     Dosage: 10 MG, UNK
  3. SINGULAIR [Concomitant]
     Dosage: 4 MG, UNK GRA
  4. SOMA [Concomitant]
     Dosage: 250 MG, UNK
  5. XANAX [Concomitant]
     Dosage: 1 MG, UNK
  6. TOPAMAX SPRINKLE [Concomitant]
     Dosage: 25 MG, UNK

REACTIONS (1)
  - Herpes zoster [Unknown]
